FAERS Safety Report 11193773 (Version 1)
Quarter: 2015Q2

REPORT INFORMATION
  Report Type: Spontaneous
  Country: FR (occurrence: FR)
  Receive Date: 20150616
  Receipt Date: 20150616
  Transmission Date: 20150821
  Serious: Yes (Life-Threatening, Hospitalization, Other)
  Sender: FDA-Public Use
  Company Number: FR-GLAXOSMITHKLINE-B0650188A

PATIENT
  Age: 54 Year
  Sex: Female

DRUGS (4)
  1. ALLI [Suspect]
     Active Substance: ORLISTAT
     Indication: WEIGHT DECREASED
     Route: 048
     Dates: start: 201002, end: 201004
  2. EUPHYTOSE [Suspect]
     Active Substance: HERBALS
     Indication: PRODUCT USED FOR UNKNOWN INDICATION
     Route: 048
     Dates: start: 201002, end: 201004
  3. RHINADVIL [Suspect]
     Active Substance: IBUPROFEN\PSEUDOEPHEDRINE HYDROCHLORIDE
     Indication: PRODUCT USED FOR UNKNOWN INDICATION
     Route: 048
     Dates: start: 201002
  4. IBUPROFEN. [Suspect]
     Active Substance: IBUPROFEN
     Indication: PRODUCT USED FOR UNKNOWN INDICATION
     Route: 048
     Dates: end: 201004

REACTIONS (12)
  - Hepatic necrosis [Unknown]
  - Abdominal distension [Unknown]
  - Hepatic enzyme increased [Unknown]
  - Asterixis [Unknown]
  - Overdose [Unknown]
  - Hepatitis fulminant [Recovered/Resolved with Sequelae]
  - Hepatitis acute [Unknown]
  - Encephalopathy [Unknown]
  - Ascites [Unknown]
  - Varices oesophageal [Unknown]
  - Jaundice [Unknown]
  - Cell death [Unknown]

NARRATIVE: CASE EVENT DATE: 20100211
